FAERS Safety Report 18829393 (Version 1)
Quarter: 2021Q1

REPORT INFORMATION
  Report Type: Spontaneous
  Country: US (occurrence: US)
  Receive Date: 20210201
  Receipt Date: 20210201
  Transmission Date: 20210419
  Serious: No
  Sender: FDA-Public Use
  Company Number: US-ABBVIE-20K-163-3575298-00

PATIENT
  Sex: Female
  Weight: 112.14 kg

DRUGS (7)
  1. HUMIRA [Suspect]
     Active Substance: ADALIMUMAB
     Indication: CROHN^S DISEASE
     Route: 058
     Dates: start: 2015
  2. BIOTIN [Concomitant]
     Active Substance: BIOTIN
     Indication: SKIN DISORDER
  3. BIOTIN [Concomitant]
     Active Substance: BIOTIN
     Indication: NAIL DISORDER
  4. CALCIUM [Concomitant]
     Active Substance: CALCIUM
     Indication: SUPPLEMENTATION THERAPY
  5. VITAMIN D [VITAMIN D NOS] [Concomitant]
     Active Substance: VITAMIN D NOS
     Indication: VITAMIN D DECREASED
  6. ATENOLOL. [Concomitant]
     Active Substance: ATENOLOL
     Indication: HEART RATE ABNORMAL
  7. BIOTIN [Concomitant]
     Active Substance: BIOTIN
     Indication: HAIR DISORDER

REACTIONS (3)
  - Wrong technique in product usage process [Unknown]
  - Device issue [Unknown]
  - Injection site erythema [Recovered/Resolved]

NARRATIVE: CASE EVENT DATE: 20200912
